FAERS Safety Report 5169008-5 (Version None)
Quarter: 2006Q4

REPORT INFORMATION
  Report Type: 
  Country: None (occurrence: None)
  Receive Date: 20061201
  Receipt Date: 20061117
  Transmission Date: 20070319
  Serious: Yes (Death)
  Sender: FDA-Public Use
  Company Number: 2006S1010919

PATIENT
  Age: 62 Year
  Sex: Male
  Weight: 66.2252 kg

DRUGS (15)
  1. EXTENDED PHENYTOIN SODIUM [Suspect]
     Indication: CONVULSION
     Dosage: 100 MG; BID; PO, SEE IMAGE
     Route: 048
     Dates: start: 20050303, end: 20050404
  2. EXTENDED PHENYTOIN SODIUM [Suspect]
     Indication: METASTASES TO CENTRAL NERVOUS SYSTEM
     Dosage: 100 MG; BID; PO, SEE IMAGE
     Route: 048
     Dates: start: 20050303, end: 20050404
  3. EXTENDED PHENYTOIN SODIUM [Suspect]
     Indication: CONVULSION
     Dosage: 100 MG; BID; PO, SEE IMAGE
     Route: 048
     Dates: end: 20050418
  4. EXTENDED PHENYTOIN SODIUM [Suspect]
     Indication: METASTASES TO CENTRAL NERVOUS SYSTEM
     Dosage: 100 MG; BID; PO, SEE IMAGE
     Route: 048
     Dates: end: 20050418
  5. EXTENDED PHENYTOIN SODIUM [Suspect]
     Indication: CONVULSION
     Dosage: 100 MG; BID; PO, SEE IMAGE
     Route: 048
     Dates: start: 20050404
  6. EXTENDED PHENYTOIN SODIUM [Suspect]
     Indication: METASTASES TO CENTRAL NERVOUS SYSTEM
     Dosage: 100 MG; BID; PO, SEE IMAGE
     Route: 048
     Dates: start: 20050404
  7. CEPHALEXIN [Suspect]
     Indication: INFECTION
     Dosage: 500 MG; TID; PO
     Route: 048
  8. ONANETRON [Concomitant]
  9. DEXAMETHASONE SODIUM PHOSPHATE [Concomitant]
  10. HYDROMORPHONE HCL [Concomitant]
  11. PHENOBARBITAL TAB [Concomitant]
  12. HYDROXYZINE [Concomitant]
  13. BETAMETHASONE W/CLOTRIMAZOLE [Concomitant]
  14. KETOCONAZOLE [Concomitant]
  15. METHYLPREDNISOLONE [Concomitant]

REACTIONS (10)
  - CONFUSIONAL STATE [None]
  - CONVULSION [None]
  - EAR INFECTION [None]
  - OEDEMA PERIPHERAL [None]
  - OTORRHOEA [None]
  - PRURITUS [None]
  - SKIN EXFOLIATION [None]
  - STEVENS-JOHNSON SYNDROME [None]
  - SWELLING FACE [None]
  - TINEA CAPITIS [None]
